FAERS Safety Report 9637549 (Version 1)
Quarter: 2013Q4

REPORT INFORMATION
  Report Type: Spontaneous
  Country: FR (occurrence: FR)
  Receive Date: 20131022
  Receipt Date: 20131022
  Transmission Date: 20140711
  Serious: Yes (Hospitalization)
  Sender: FDA-Public Use
  Company Number: FR-ASTRAZENECA-2013SE76090

PATIENT
  Age: 22414 Day
  Sex: Female

DRUGS (5)
  1. INEXIUM [Suspect]
     Dosage: LONG LASTING TREATMENT
     Route: 048
     Dates: end: 20130923
  2. OLMETEC [Suspect]
     Dosage: LONG LASTING TREATMENT
     Route: 048
     Dates: end: 20130923
  3. TEMERIT [Concomitant]
  4. LEVOTHYROX [Concomitant]
  5. ACICLOVIR [Concomitant]
     Dates: start: 20130918, end: 20130923

REACTIONS (3)
  - Psychomotor skills impaired [Recovered/Resolved]
  - Headache [Recovered/Resolved]
  - Hyponatraemia [Recovered/Resolved]
